FAERS Safety Report 10680124 (Version 1)
Quarter: 2014Q4

REPORT INFORMATION
  Report Type: Spontaneous
  Country: FR (occurrence: FR)
  Receive Date: 20141229
  Receipt Date: 20141229
  Transmission Date: 20150529
  Serious: Yes (Hospitalization)
  Sender: FDA-Public Use
  Company Number: FR-PFIZER INC-2014353973

PATIENT
  Age: 42 Year
  Sex: Female

DRUGS (4)
  1. LYRICA [Suspect]
     Active Substance: PREGABALIN
     Indication: GUILLAIN-BARRE SYNDROME
     Dosage: UNTIL 300-400 MG PER DAY
     Route: 048
     Dates: start: 2010, end: 201404
  2. NEURONTIN [Concomitant]
     Active Substance: GABAPENTIN
     Indication: GUILLAIN-BARRE SYNDROME
     Dosage: UNK
     Dates: start: 2010, end: 2011
  3. LAROXYL [Concomitant]
     Active Substance: AMITRIPTYLINE
     Indication: GUILLAIN-BARRE SYNDROME
     Dosage: UNK
     Dates: start: 2010, end: 2011
  4. MORPHINE [Concomitant]
     Active Substance: MORPHINE
     Indication: GUILLAIN-BARRE SYNDROME
     Dosage: UNK
     Dates: start: 2010, end: 2011

REACTIONS (9)
  - Suicide attempt [Not Recovered/Not Resolved]
  - Bipolar disorder [Not Recovered/Not Resolved]
  - Anger [Not Recovered/Not Resolved]
  - Depression [Not Recovered/Not Resolved]
  - Anxiety [Not Recovered/Not Resolved]
  - Personality disorder [Not Recovered/Not Resolved]
  - Memory impairment [Not Recovered/Not Resolved]
  - Product use issue [Not Recovered/Not Resolved]
  - Aggression [Not Recovered/Not Resolved]

NARRATIVE: CASE EVENT DATE: 2010
